FAERS Safety Report 5008906-X (Version None)
Quarter: 2006Q2

REPORT INFORMATION
  Report Type: 
  Country: None (occurrence: None)
  Receive Date: 20060518
  Receipt Date: 20060510
  Transmission Date: 20061013
  Serious: Yes (Other)
  Sender: FDA-Public Use
  Company Number: 224710

PATIENT
  Age: 27 Year
  Sex: Female
  Weight: 54.9 kg

DRUGS (5)
  1. XOLAIR [Suspect]
     Indication: ASTHMA
     Dosage: 300 MG, Q4W, SUBCUTANEOUS
     Route: 058
     Dates: start: 20050510
  2. PULMICORT [Concomitant]
  3. RHINOCORT [Concomitant]
  4. CLARINEX [Concomitant]
  5. ALBUTEROL (ALBUTEROL/ALBUTEROL SULFATE) [Concomitant]

REACTIONS (2)
  - MITRAL VALVE PROLAPSE [None]
  - SINUS ARRHYTHMIA [None]
